FAERS Safety Report 6894119-3 (Version None)
Quarter: 2010Q3

REPORT INFORMATION
  Report Type: 
  Country: None (occurrence: None)
  Receive Date: 20100802
  Receipt Date: 20100728
  Transmission Date: 20110219
  Serious: Yes (Life-Threatening, Hospitalization)
  Sender: FDA-Public Use
  Company Number: JP-JNJFOC-20100704351

PATIENT
  Age: 85 Year
  Sex: Female

DRUGS (9)
  1. DUROTEP MT [Suspect]
     Indication: ARTHRALGIA
     Route: 062
  2. DUROTEP MT [Suspect]
     Indication: PAIN
     Route: 062
  3. AMLODIPINE BESYLATE [Concomitant]
     Route: 048
  4. DIOVAN [Concomitant]
     Route: 048
  5. LASIX [Concomitant]
     Route: 048
  6. ALDACTONE [Concomitant]
     Route: 048
  7. ASPIRIN [Concomitant]
     Route: 048
  8. MEXITIL [Concomitant]
     Route: 048
  9. OMEPRAL [Concomitant]
     Route: 048

REACTIONS (5)
  - DEPRESSED LEVEL OF CONSCIOUSNESS [None]
  - DYSPNOEA [None]
  - RESPIRATORY ARREST [None]
  - SNORING [None]
  - UNRESPONSIVE TO STIMULI [None]
